FAERS Safety Report 4287260-5 (Version None)
Quarter: 2004Q1

REPORT INFORMATION
  Report Type: 
  Country: None (occurrence: None)
  Receive Date: 20040126
  Receipt Date: 20031003
  Transmission Date: 20041129
  Serious: No
  Sender: FDA-Public Use
  Company Number: USA030639851

PATIENT
  Age: 55 Year
  Sex: Female
  Weight: 73 kg

DRUGS (2)
  1. FORTEO [Suspect]
     Indication: OSTEOPOROSIS
     Dates: start: 20021201
  2. HYDROCHLOROTHIAZIDE [Concomitant]

REACTIONS (1)
  - FLUID RETENTION [None]
